FAERS Safety Report 4972849-8 (Version None)
Quarter: 2006Q2

REPORT INFORMATION
  Report Type: 
  Country: None (occurrence: None)
  Receive Date: 20060414
  Receipt Date: 20040929
  Transmission Date: 20061013
  Serious: Yes (Hospitalization)
  Sender: FDA-Public Use
  Company Number: JP-NOVOPROD-247342

PATIENT
  Age: 38 Year
  Sex: Female
  Weight: 46 kg

DRUGS (8)
  1. NOVORAPID CHU FLEXPEN [Suspect]
     Indication: DIABETES MELLITUS INSULIN-DEPENDENT
     Dosage: 19 IU, QD
     Route: 058
     Dates: start: 20031209, end: 20051023
  2. LANTUS [Suspect]
     Indication: DIABETES MELLITUS INSULIN-DEPENDENT
     Dosage: 8 IU, QD
     Route: 058
     Dates: start: 20031220, end: 20050414
  3. LANTUS [Suspect]
     Dosage: 9 IU, QD
     Dates: start: 20050802, end: 20051023
  4. NOVOLIN N [Suspect]
     Indication: DIABETES MELLITUS INSULIN-DEPENDENT
     Dosage: 6 IU, QD
     Route: 058
     Dates: start: 20030810, end: 20031219
  5. NOVOLIN N [Suspect]
     Dosage: 9 IU, QD
     Dates: start: 20050415, end: 20050801
  6. NOVORAPID CHU [Suspect]
     Indication: DIABETES MELLITUS INSULIN-DEPENDENT
     Dates: start: 20030222, end: 20031209
  7. PENFILL R CHU [Suspect]
     Indication: DIABETES MELLITUS INSULIN-DEPENDENT
     Dosage: 15 IU, UNK
     Route: 058
     Dates: start: 20001208, end: 20030222
  8. PENFILL N CHU [Suspect]
     Indication: DIABETES MELLITUS INSULIN-DEPENDENT
     Dosage: 8 IU, UNK
     Dates: start: 20001208, end: 20030809

REACTIONS (3)
  - GLYCOGEN STORAGE DISEASE TYPE VIII [None]
  - HEPATIC STEATOSIS [None]
  - LIVER FUNCTION TEST ABNORMAL [None]
